FAERS Safety Report 4402761-4 (Version None)
Quarter: 2004Q3

REPORT INFORMATION
  Report Type: 
  Country: None (occurrence: None)
  Receive Date: 20040721
  Receipt Date: 20030917
  Transmission Date: 20050211
  Serious: No
  Sender: FDA-Public Use
  Company Number: US-BRISTOL-MYERS SQUIBB COMPANY-12386611

PATIENT
  Age: 47 Year
  Sex: Female
  Weight: 91 kg

DRUGS (2)
  1. ESTRACE [Suspect]
     Indication: HYSTERECTOMY
     Route: 048
     Dates: start: 19950301
  2. SYNTHROID [Concomitant]

REACTIONS (4)
  - FACE OEDEMA [None]
  - ORAL DISCOMFORT [None]
  - SWELLING FACE [None]
  - URTICARIA [None]
